FAERS Safety Report 7563577-3 (Version None)
Quarter: 2011Q2

REPORT INFORMATION
  Report Type: 
  Country: None (occurrence: None)
  Receive Date: 20110621
  Receipt Date: 20110621
  Transmission Date: 20111010
  Serious: Yes (Hospitalization)
  Sender: FDA-Public Use
  Company Number: None

PATIENT
  Age: 60 Year
  Sex: Female
  Weight: 68.0396 kg

DRUGS (1)
  1. PRAVASTATIN [Suspect]
     Dosage: 20 MG. EACH NIGHT
     Dates: start: 20101101, end: 20110601

REACTIONS (8)
  - DIZZINESS [None]
  - HEADACHE [None]
  - SLEEP DISORDER [None]
  - MALAISE [None]
  - FEELING ABNORMAL [None]
  - MUSCULAR WEAKNESS [None]
  - MEMORY IMPAIRMENT [None]
  - ABASIA [None]
